FAERS Safety Report 20850929 (Version 1)
Quarter: 2022Q2

REPORT INFORMATION
  Report Type: Other
  Country: CN (occurrence: CN)
  Receive Date: 20220519
  Receipt Date: 20220519
  Transmission Date: 20220721
  Serious: Yes (Other)
  Sender: FDA-Public Use
  Company Number: CN-GE HEALTHCARE-2022CSU003344

PATIENT
  Age: 61 Year
  Sex: Female
  Weight: 62 kg

DRUGS (3)
  1. OMNIPAQUE [Suspect]
     Active Substance: IOHEXOL
     Indication: Diagnostic procedure
     Dosage: 50 ML VIA HIGH PRESSURE INJECTION, ONCE
     Route: 041
     Dates: start: 20220513, end: 20220513
  2. OMNIPAQUE [Suspect]
     Active Substance: IOHEXOL
     Indication: Angina unstable
  3. SODIUM CHLORIDE [Concomitant]
     Active Substance: SODIUM CHLORIDE
     Dosage: 50 ML, 5 ML/SEC
     Dates: start: 20220513, end: 20220513

REACTIONS (2)
  - Lip discolouration [Recovered/Resolved]
  - Urticaria [Recovered/Resolved]

NARRATIVE: CASE EVENT DATE: 20220513
